FAERS Safety Report 5452850-0 (Version None)
Quarter: 2007Q3

REPORT INFORMATION
  Report Type: 
  Country: None (occurrence: None)
  Receive Date: 20070914
  Receipt Date: 20070904
  Transmission Date: 20080115
  Serious: Yes (Hospitalization)
  Sender: FDA-Public Use
  Company Number: AU-ROCHE-515105

PATIENT
  Sex: Female

DRUGS (1)
  1. XENICAL [Suspect]
     Indication: DRUG USE FOR UNKNOWN INDICATION
     Dosage: THE PATIENT RECEIVED ORLISTAT FOR 3 WEEKS
     Route: 065
     Dates: start: 20070801, end: 20070821

REACTIONS (4)
  - ABDOMINAL PAIN [None]
  - ANXIETY [None]
  - APPENDICITIS [None]
  - DEPRESSION [None]
